FAERS Safety Report 13828706 (Version 1)
Quarter: 2017Q3

REPORT INFORMATION
  Report Type: Spontaneous
  Country: US (occurrence: US)
  Receive Date: 20170803
  Receipt Date: 20170803
  Transmission Date: 20171127
  Serious: Yes (Death, Other)
  Sender: FDA-Public Use
  Company Number: US-ASTELLAS-2017US025636

PATIENT
  Age: 75 Year
  Sex: Male

DRUGS (1)
  1. XTANDI [Suspect]
     Active Substance: ENZALUTAMIDE
     Indication: HORMONE-REFRACTORY PROSTATE CANCER
     Route: 048
     Dates: start: 20160919, end: 20170618

REACTIONS (10)
  - Gastrointestinal disorder [Unknown]
  - Influenza like illness [Unknown]
  - Chills [Unknown]
  - Malignant neoplasm progression [Unknown]
  - Fatigue [Unknown]
  - Speech disorder [Unknown]
  - Death [Fatal]
  - Hypersomnia [Unknown]
  - Hot flush [Unknown]
  - Asthenia [Unknown]

NARRATIVE: CASE EVENT DATE: 201705
